FAERS Safety Report 12227869 (Version 2)
Quarter: 2016Q2

REPORT INFORMATION
  Report Type: Report from Study
  Country: CA (occurrence: CA)
  Receive Date: 20160401
  Receipt Date: 20160419
  Transmission Date: 20160815
  Serious: Yes (Other)
  Sender: FDA-Public Use
  Company Number: CA-BEH-2016060748

PATIENT
  Age: 58 Year
  Sex: Female

DRUGS (2)
  1. HIZENTRA [Suspect]
     Active Substance: HUMAN IMMUNOGLOBULIN G
     Indication: PRIMARY IMMUNODEFICIENCY SYNDROME
     Dosage: PUMP METHOD
     Route: 058
     Dates: start: 20121005
  2. HIZENTRA [Suspect]
     Active Substance: HUMAN IMMUNOGLOBULIN G
     Indication: IMMUNODEFICIENCY COMMON VARIABLE
     Dosage: PUMP METHOD
     Route: 058
     Dates: start: 20121005

REACTIONS (2)
  - White blood cell count increased [Unknown]
  - Bronchitis [Unknown]

NARRATIVE: CASE EVENT DATE: 201601
